FAERS Safety Report 10379368 (Version 1)
Quarter: 2014Q3

REPORT INFORMATION
  Report Type: Report from Study
  Country: NZ (occurrence: None)
  Receive Date: 20140808
  Receipt Date: 20140808
  Transmission Date: 20150326
  Serious: Yes (Death)
  Sender: FDA-Public Use
  Company Number: VAL_03267_2014

PATIENT
  Age: 80 Year
  Sex: Male

DRUGS (11)
  1. DONEPEZIL [Concomitant]
     Active Substance: DONEPEZIL
  2. METOPROLOL [Suspect]
     Active Substance: METOPROLOL
     Indication: MYOCARDIAL ISCHAEMIA
     Route: 048
  3. CLOZARIL [Suspect]
     Active Substance: CLOZAPINE
     Indication: PARKINSON^S DISEASE
     Dosage: 12.5MG NOCTE ORAL
     Route: 048
     Dates: start: 20120306
  4. CLOZARIL [Suspect]
     Active Substance: CLOZAPINE
     Indication: HALLUCINATION
     Dosage: 12.5MG NOCTE ORAL
     Route: 048
     Dates: start: 20120306
  5. WARFARIN [Concomitant]
     Active Substance: WARFARIN
  6. DIGOXIN. [Concomitant]
     Active Substance: DIGOXIN
  7. L DOPA [Concomitant]
     Active Substance: LEVODOPA
  8. ASPIRIN. [Concomitant]
     Active Substance: ASPIRIN
  9. ROPINIROLE. [Suspect]
     Active Substance: ROPINIROLE
     Indication: PARKINSON^S DISEASE
     Route: 048
  10. FRUSEMIDE [Suspect]
     Active Substance: FUROSEMIDE
     Indication: CARDIAC FAILURE CONGESTIVE
     Route: 048
  11. ALLOPURINOL. [Concomitant]
     Active Substance: ALLOPURINOL

REACTIONS (4)
  - Cerebrovascular accident [None]
  - Fall [None]
  - Transient ischaemic attack [None]
  - Circulatory collapse [None]

NARRATIVE: CASE EVENT DATE: 201405
